FAERS Safety Report 9818104 (Version 2)
Quarter: 2014Q1

REPORT INFORMATION
  Report Type: Report from Study
  Country: CA (occurrence: CA)
  Receive Date: 20140115
  Receipt Date: 20140115
  Transmission Date: 20141002
  Serious: Yes (Hospitalization, Other)
  Sender: FDA-Public Use
  Company Number: PHHY2012CA116488

PATIENT
  Age: 66 Year
  Sex: Female

DRUGS (1)
  1. SANDOSTATIN LAR [Suspect]
     Indication: CARCINOID TUMOUR OF THE STOMACH
     Dosage: 10 MG, EVERY 4 WEEKS
     Route: 030
     Dates: start: 20111023

REACTIONS (7)
  - Cystitis [Unknown]
  - Kidney infection [Unknown]
  - Tachycardia [Unknown]
  - Blood pressure increased [Unknown]
  - Back pain [Unknown]
  - Sciatica [Unknown]
  - Blood glucose increased [Unknown]
